FAERS Safety Report 9716470 (Version 1)
Quarter: 2013Q4

REPORT INFORMATION
  Report Type: Report from Study
  Country: US (occurrence: US)
  Receive Date: 20131127
  Receipt Date: 20131127
  Transmission Date: 20140711
  Serious: Yes (Life-Threatening, Hospitalization)
  Sender: FDA-Public Use
  Company Number: US-BRISTOL-MYERS SQUIBB COMPANY-19845080

PATIENT
  Age: 71 Year
  Sex: Female
  Weight: 99.9 kg

DRUGS (11)
  1. CARBOPLATIN [Suspect]
     Indication: NON-SMALL CELL LUNG CANCER
     Dosage: AUC :6
     Route: 042
     Dates: start: 20130731
  2. PACLITAXEL [Suspect]
     Indication: NON-SMALL CELL LUNG CANCER
     Dosage: LAST DOSE PRIOR TO EVENT : 29OCT13
     Route: 042
     Dates: start: 20130731
  3. MS CONTIN [Concomitant]
     Dates: start: 20130806, end: 20131107
  4. DEXAMETHASONE [Concomitant]
     Dates: start: 20130731
  5. BENADRYL [Concomitant]
  6. ALOXI [Concomitant]
     Dates: start: 20130730
  7. EMEND [Concomitant]
     Dates: start: 20130730
  8. ZANTAC [Concomitant]
     Dates: start: 20130730
  9. CHONDROITIN SULFATE + GLUCOSAMINE [Concomitant]
     Dates: start: 2012
  10. LISINOPRIL + HCTZ [Concomitant]
     Dates: start: 2008, end: 20131107
  11. VITAMIN C [Concomitant]
     Dates: start: 2012

REACTIONS (2)
  - Renal failure acute [Recovered/Resolved]
  - Dehydration [Recovered/Resolved]
